FAERS Safety Report 6746819-3 (Version None)
Quarter: 2010Q2

REPORT INFORMATION
  Report Type: 
  Country: None (occurrence: None)
  Receive Date: 20100528
  Receipt Date: 20100111
  Transmission Date: 20101027
  Serious: No
  Sender: FDA-Public Use
  Company Number: A0838752A

PATIENT
  Age: 33 Year
  Sex: Female

DRUGS (1)
  1. VENTOLIN [Suspect]
     Indication: ASTHMA
     Route: 055

REACTIONS (1)
  - DRUG INEFFECTIVE [None]
